FAERS Safety Report 5774823-0 (Version None)
Quarter: 2008Q2

REPORT INFORMATION
  Report Type: 
  Country: None (occurrence: None)
  Receive Date: 20080617
  Receipt Date: 20080602
  Transmission Date: 20081010
  Serious: Yes (Hospitalization)
  Sender: FDA-Public Use
  Company Number: FR-ELI_LILLY_AND_COMPANY-FR200805000534

PATIENT
  Age: 86 Year
  Sex: Female
  Weight: 55 kg

DRUGS (5)
  1. FORTEO [Suspect]
     Indication: OSTEOPOROSIS
     Dosage: 20 UG, DAILY (1/D)
     Route: 058
     Dates: start: 20071105, end: 20080320
  2. DAFALGAN [Concomitant]
     Indication: PAIN
     Dosage: 4 D/F, DAILY (1/D)
     Route: 048
  3. FORLAX [Concomitant]
     Indication: CONSTIPATION
     Dosage: 2 D/F, DAILY (1/D)
     Route: 048
  4. SKENAN [Concomitant]
     Indication: PAIN
     Dosage: 60 MG, UNKNOWN
     Route: 065
     Dates: start: 20080315
  5. SKENAN [Concomitant]
     Dosage: 30 MG, UNKNOWN
     Route: 065
     Dates: end: 20080320

REACTIONS (4)
  - BACK PAIN [None]
  - NAUSEA [None]
  - PNEUMONIA [None]
  - VOMITING [None]
